FAERS Safety Report 25808503 (Version 2)
Quarter: 2025Q3

REPORT INFORMATION
  Report Type: Spontaneous
  Country: IN (occurrence: IN)
  Receive Date: 20250916
  Receipt Date: 20250917
  Transmission Date: 20251020
  Serious: Yes (Life-Threatening, Hospitalization)
  Sender: PFIZER
  Company Number: IN-MLMSERVICE-20250909-PI632266-00270-2

PATIENT
  Sex: Male

DRUGS (18)
  1. METHYLPREDNISOLONE SODIUM SUCCINATE [Suspect]
     Active Substance: METHYLPREDNISOLONE SODIUM SUCCINATE
     Indication: Encephalitis autoimmune
     Route: 042
  2. METHYLPREDNISOLONE SODIUM SUCCINATE [Suspect]
     Active Substance: METHYLPREDNISOLONE SODIUM SUCCINATE
     Indication: Drug reaction with eosinophilia and systemic symptoms
  3. LEVETIRACETAM [Concomitant]
     Active Substance: LEVETIRACETAM
  4. PHENYTOIN [Concomitant]
     Active Substance: PHENYTOIN
     Indication: Seizure
     Route: 042
  5. VALPROATE SODIUM [Concomitant]
     Active Substance: VALPROATE SODIUM
     Indication: Seizure
  6. LACOSAMIDE [Concomitant]
     Active Substance: LACOSAMIDE
     Indication: Staring
  7. LACOSAMIDE [Concomitant]
     Active Substance: LACOSAMIDE
     Indication: Partial seizures
  8. MIDAZOLAM [Concomitant]
     Active Substance: MIDAZOLAM
     Indication: Staring
  9. MIDAZOLAM [Concomitant]
     Active Substance: MIDAZOLAM
     Indication: Partial seizures
  10. KETAMINE [Concomitant]
     Active Substance: KETAMINE
     Indication: Seizure
  11. PYRIDOXINE [Concomitant]
     Active Substance: PYRIDOXINE
     Indication: Seizure
  12. CARNITINE [Concomitant]
     Active Substance: CARNITINE
     Indication: Seizure
  13. PHENOBARBITAL [Concomitant]
     Active Substance: PHENOBARBITAL
     Indication: Seizure
  14. TETRABENAZINE [Concomitant]
     Active Substance: TETRABENAZINE
     Indication: Seizure
  15. TRIHEXYPHENIDYL HYDROCHLORIDE [Concomitant]
     Active Substance: TRIHEXYPHENIDYL HYDROCHLORIDE
     Indication: Dyskinesia
  16. TOPIRAMATE [Concomitant]
     Active Substance: TOPIRAMATE
     Indication: Seizure cluster
  17. HUMAN IMMUNOGLOBULIN G [Concomitant]
     Active Substance: HUMAN IMMUNOGLOBULIN G
     Indication: Encephalitis autoimmune
     Route: 042
  18. HUMAN IMMUNOGLOBULIN G [Concomitant]
     Active Substance: HUMAN IMMUNOGLOBULIN G
     Indication: Drug reaction with eosinophilia and systemic symptoms
     Route: 042

REACTIONS (6)
  - Pseudomonas infection [Recovered/Resolved]
  - Vascular device infection [Recovered/Resolved]
  - Acinetobacter infection [Recovered/Resolved]
  - Klebsiella infection [Unknown]
  - Burkholderia cepacia complex infection [Unknown]
  - Off label use [Unknown]
